FAERS Safety Report 21769391 (Version 2)
Quarter: 2022Q4

REPORT INFORMATION
  Report Type: Report from Study
  Country: US (occurrence: US)
  Receive Date: 20221223
  Receipt Date: 20221223
  Transmission Date: 20230113
  Serious: Yes (Hospitalization)
  Sender: FDA-Public Use
  Company Number: US-ABBVIE-4200050

PATIENT
  Age: 67 Year
  Sex: Male

DRUGS (1)
  1. HUMIRA [Suspect]
     Active Substance: ADALIMUMAB
     Indication: Rheumatoid arthritis
     Route: 058
     Dates: start: 20210617

REACTIONS (5)
  - Atrial fibrillation [Unknown]
  - Pain in extremity [Unknown]
  - COVID-19 [Unknown]
  - Urinary tract infection [Unknown]
  - Neck pain [Unknown]

NARRATIVE: CASE EVENT DATE: 20220901
